FAERS Safety Report 21490099 (Version 1)
Quarter: 2022Q4

REPORT INFORMATION
  Report Type: Spontaneous
  Country: DE (occurrence: DE)
  Receive Date: 20221021
  Receipt Date: 20221021
  Transmission Date: 20230112
  Serious: Yes (Hospitalization, Other)
  Sender: FDA-Public Use
  Company Number: DE-ALKEM LABORATORIES LIMITED-DE-ALKEM-2022-11137

PATIENT
  Age: 67 Year
  Sex: Female

DRUGS (10)
  1. VENLAFAXINE [Interacting]
     Active Substance: VENLAFAXINE HYDROCHLORIDE
     Indication: Depression
     Dosage: 225 MILLIGRAM, DAILY
     Route: 065
  2. VENLAFAXINE [Interacting]
     Active Substance: VENLAFAXINE HYDROCHLORIDE
     Dosage: 300 MILLIGRAM, DAILY (INCREASE THE DOSE)
     Route: 065
  3. VENLAFAXINE [Interacting]
     Active Substance: VENLAFAXINE HYDROCHLORIDE
     Dosage: 75 MILLIGRAM, DAILY (RESTARTED)
     Route: 065
  4. VENLAFAXINE [Interacting]
     Active Substance: VENLAFAXINE HYDROCHLORIDE
     Dosage: 50 MILLIGRAM, DAILY TO MAINTAIN THERAPEUTIC SERUM LEVELS
     Route: 065
  5. PROPAFENONE [Interacting]
     Active Substance: PROPAFENONE
     Indication: Atrial fibrillation
     Dosage: 600 MILLIGRAM, DAILY
     Route: 065
  6. PROPAFENONE [Interacting]
     Active Substance: PROPAFENONE
     Dosage: 300 MILLIGRAM, DAILY (REDUCED IN  AN ATTEMPT TO IMPROVE THE SEVERE OTHOSTATIC HYPOTENSION)
     Route: 065
  7. PROPAFENONE [Interacting]
     Active Substance: PROPAFENONE
     Dosage: 600 MILLIGRAM, DAILY (INCREASED AGAIN)
     Route: 065
  8. VERAPAMIL [Concomitant]
     Active Substance: VERAPAMIL HYDROCHLORIDE
     Indication: Atrial fibrillation
     Dosage: UNK
     Route: 065
  9. Beta-acetyl-digoxin [Concomitant]
     Indication: Atrial fibrillation
     Dosage: UNK
     Route: 065
  10. BISOPROLOL [Concomitant]
     Active Substance: BISOPROLOL
     Indication: Atrial fibrillation
     Dosage: UNK
     Route: 065

REACTIONS (7)
  - Drug interaction [Unknown]
  - Mental impairment [Recovering/Resolving]
  - Confusional state [Recovering/Resolving]
  - Hallucination, visual [Recovering/Resolving]
  - Psychotic disorder due to a general medical condition [Recovering/Resolving]
  - Vascular encephalopathy [Recovering/Resolving]
  - Orthostatic hypotension [Recovering/Resolving]
